FAERS Safety Report 9969106 (Version 1)
Quarter: 2014Q1

REPORT INFORMATION
  Report Type: Spontaneous
  Country: US (occurrence: US)
  Receive Date: 20140306
  Receipt Date: 20140306
  Transmission Date: 20141002
  Serious: No
  Sender: FDA-Public Use
  Company Number: US-ABBVIE-13P-163-1145326-00

PATIENT
  Age: 30 Year
  Sex: Female
  Weight: 90.8 kg

DRUGS (3)
  1. HUMIRA (ABBOTT) [Suspect]
     Indication: CROHN^S DISEASE
     Dates: start: 201305, end: 201305
  2. HUMIRA (ABBOTT) [Suspect]
  3. HUMIRA (ABBOTT) [Suspect]

REACTIONS (2)
  - Cough [Not Recovered/Not Resolved]
  - Nasopharyngitis [Not Recovered/Not Resolved]
